FAERS Safety Report 11094644 (Version 1)
Quarter: 2015Q2

REPORT INFORMATION
  Report Type: Spontaneous
  Country: US (occurrence: US)
  Receive Date: 20150506
  Receipt Date: 20150506
  Transmission Date: 20150821
  Serious: No
  Sender: FDA-Public Use
  Company Number: US-PFIZER INC-2015148279

PATIENT
  Age: 59 Year
  Sex: Female
  Weight: 89 kg

DRUGS (1)
  1. CHANTIX [Suspect]
     Active Substance: VARENICLINE TARTRATE
     Dosage: UNK
     Dates: start: 2015, end: 2015

REACTIONS (5)
  - Constipation [Not Recovered/Not Resolved]
  - Nausea [Unknown]
  - Weight increased [Unknown]
  - Eating disorder [Unknown]
  - Headache [Not Recovered/Not Resolved]

NARRATIVE: CASE EVENT DATE: 2015
